FAERS Safety Report 8612583 (Version 3)
Quarter: 2012Q4

REPORT INFORMATION
  Report Type: 
  Country: JP (occurrence: JP)
  Receive Date: 20120613
  Receipt Date: 20121010
  Transmission Date: 20130627
  Serious: Yes (Hospitalization)
  Sender: FDA-Public Use
  Company Number: JP-GLAXOSMITHKLINE-B0807045A

PATIENT
  Age: 63 None
  Sex: Female
  Weight: 61 kg

DRUGS (6)
  1. VALTREX [Suspect]
     Indication: HERPES ZOSTER
     Dosage: 1000MG Twice per day
     Route: 048
     Dates: start: 20120530, end: 20120604
  2. METGLUCO [Suspect]
     Indication: DIABETES MELLITUS
     Dosage: 500MG Twice per day
     Route: 048
  3. MAIBASTAN [Suspect]
     Indication: HYPERCHOLESTEROLAEMIA
     Dosage: 10MG Per day
     Route: 048
  4. BENIDIPINE HYDROCHLORIDE [Suspect]
     Indication: HYPERTENSION
     Dosage: 6MG Twice per day
     Route: 048
  5. RHEUMATREX [Suspect]
     Indication: MUSCULOSKELETAL PAIN
     Dosage: 2MG Per day
     Route: 048
  6. CELECOX [Suspect]
     Indication: MUSCULOSKELETAL PAIN
     Dosage: 200MG Twice per day
     Route: 048

REACTIONS (6)
  - Renal failure acute [Recovered/Resolved]
  - Blood urea increased [Unknown]
  - Blood creatinine increased [Unknown]
  - Blood sodium decreased [Unknown]
  - Blood potassium increased [Unknown]
  - Renal disorder [Unknown]
